FAERS Safety Report 15406133 (Version 1)
Quarter: 2018Q4

REPORT INFORMATION
  Report Type: Spontaneous
  Country: US (occurrence: US)
  Receive Date: 20180920
  Receipt Date: 20180920
  Transmission Date: 20190204
  Serious: No
  Sender: FDA-Public Use
  Company Number: US-TEVA-2018-US-954750

PATIENT
  Sex: Female

DRUGS (2)
  1. METROTAB [METRONIDAZOLE] [Suspect]
     Active Substance: METRONIDAZOLE
     Indication: INFECTION PARASITIC
     Route: 065
     Dates: start: 20180701
  2. AMOXICILLIN. [Concomitant]
     Active Substance: AMOXICILLIN
     Route: 065

REACTIONS (1)
  - Nightmare [Unknown]

NARRATIVE: CASE EVENT DATE: 201807
